FAERS Safety Report 7559416-7 (Version None)
Quarter: 2011Q2

REPORT INFORMATION
  Report Type: 
  Country: None (occurrence: None)
  Receive Date: 20110621
  Receipt Date: 20110614
  Transmission Date: 20111010
  Serious: Yes (Other)
  Sender: FDA-Public Use
  Company Number: JP-BRISTOL-MYERS SQUIBB COMPANY-15836315

PATIENT
  Age: 5 Decade
  Sex: Female

DRUGS (1)
  1. BARACLUDE [Suspect]
     Indication: HEPATITIS B
     Dosage: INTERRUPTED ON 13-JUN-2011(17 DAYS)
     Route: 048
     Dates: start: 20110528

REACTIONS (2)
  - ANGINA PECTORIS [None]
  - MYALGIA [None]
